FAERS Safety Report 5816833-0 (Version None)
Quarter: 2008Q3

REPORT INFORMATION
  Report Type: 
  Country: None (occurrence: None)
  Receive Date: 20080721
  Receipt Date: 20080711
  Transmission Date: 20090109
  Serious: Yes (Hospitalization)
  Sender: FDA-Public Use
  Company Number: PHHO2008FR03156

PATIENT
  Sex: Female
  Weight: 75 kg

DRUGS (5)
  1. ERL 080A ERL+TAB [Suspect]
     Indication: SYSTEMIC LUPUS ERYTHEMATOSUS
     Dosage: UNK
     Route: 048
     Dates: start: 20080207, end: 20080219
  2. ERL 080A ERL+TAB [Suspect]
     Dosage: 2160 MG, QD
     Route: 048
     Dates: start: 20080220, end: 20080227
  3. ERL 080A ERL+TAB [Suspect]
     Dosage: 720 MG, DAILY
     Route: 048
     Dates: start: 20080303, end: 20080310
  4. ERL 080A ERL+TAB [Suspect]
     Dosage: 1440 MG, DAILY
     Route: 048
     Dates: start: 20080311, end: 20080316
  5. ERL 080A ERL+TAB [Suspect]
     Dosage: 720 MG, DAILY
     Route: 048
     Dates: start: 20080317

REACTIONS (4)
  - DEHYDRATION [None]
  - DIARRHOEA [None]
  - RENAL FAILURE ACUTE [None]
  - VOMITING [None]
